FAERS Safety Report 25360991 (Version 1)
Quarter: 2025Q2

REPORT INFORMATION
  Report Type: Spontaneous
  Country: RU (occurrence: RU)
  Receive Date: 20250527
  Receipt Date: 20250527
  Transmission Date: 20250717
  Serious: Yes (Hospitalization, Other)
  Sender: RANBAXY
  Company Number: RU-SUN PHARMACEUTICAL INDUSTRIES LTD-2025R1-504405

PATIENT
  Age: 24 Year

DRUGS (2)
  1. CEFTRIAXONE [Suspect]
     Active Substance: CEFTRIAXONE
     Indication: Anaphylactic reaction
     Route: 030
  2. LIDOCAINE [Suspect]
     Active Substance: LIDOCAINE
     Indication: Anaphylactic reaction
     Route: 065

REACTIONS (3)
  - Anaphylactic shock [Recovered/Resolved]
  - Cross sensitivity reaction [Unknown]
  - Drug hypersensitivity [Unknown]
